FAERS Safety Report 16647487 (Version 2)
Quarter: 2019Q3

REPORT INFORMATION
  Report Type: Spontaneous
  Country: US (occurrence: US)
  Receive Date: 20190730
  Receipt Date: 20190906
  Transmission Date: 20191004
  Serious: No
  Sender: FDA-Public Use
  Company Number: US-PFIZER INC-2019324009

PATIENT
  Age: 71 Year
  Sex: Female
  Weight: 69.4 kg

DRUGS (2)
  1. XALATAN [Suspect]
     Active Substance: LATANOPROST
     Indication: DRY EYE
     Dosage: UNK
  2. XALATAN [Suspect]
     Active Substance: LATANOPROST
     Indication: EYE PRURITUS

REACTIONS (4)
  - Off label use [Not Recovered/Not Resolved]
  - Condition aggravated [Unknown]
  - Product use in unapproved indication [Not Recovered/Not Resolved]
  - Visual impairment [Recovering/Resolving]
